FAERS Safety Report 4906148-7 (Version None)
Quarter: 2006Q1

REPORT INFORMATION
  Report Type: 
  Country: None (occurrence: None)
  Receive Date: 20060206
  Receipt Date: 20060119
  Transmission Date: 20060701
  Serious: Yes (Hospitalization)
  Sender: FDA-Public Use
  Company Number: DSA_60617_2006

PATIENT
  Age: 49 Year
  Sex: Female

DRUGS (1)
  1. DIHYDROERGOTAMINE MESYLATE [Suspect]
     Indication: HEADACHE
     Dosage: VAR QDAY

REACTIONS (7)
  - AORTIC VALVE INCOMPETENCE [None]
  - DYSPNOEA EXERTIONAL [None]
  - MITRAL VALVE INCOMPETENCE [None]
  - MITRAL VALVE STENOSIS [None]
  - PULMONARY VALVE INCOMPETENCE [None]
  - REFUSAL OF TREATMENT BY PATIENT [None]
  - TRICUSPID VALVE INCOMPETENCE [None]
